FAERS Safety Report 10108911 (Version 2)
Quarter: 2014Q3

REPORT INFORMATION
  Report Type: Spontaneous
  Country: US (occurrence: US)
  Receive Date: 20140425
  Receipt Date: 20140919
  Transmission Date: 20150326
  Serious: Yes (Hospitalization)
  Sender: FDA-Public Use
  Company Number: US-BAYER-2014-058768

PATIENT
  Age: 35 Year
  Sex: Female
  Weight: 76.19 kg

DRUGS (3)
  1. YAZ [Suspect]
     Active Substance: DROSPIRENONE\ETHINYL ESTRADIOL
     Indication: CONTRACEPTION
     Dosage: UNK
     Route: 048
     Dates: start: 2004, end: 2007
  2. YAZ [Suspect]
     Active Substance: DROSPIRENONE\ETHINYL ESTRADIOL
     Indication: PREMENSTRUAL SYNDROME
  3. VITAMIN C [ASCORBIC ACID] [Concomitant]

REACTIONS (7)
  - Anxiety [None]
  - Pain [None]
  - Emotional distress [None]
  - Anhedonia [None]
  - Injury [None]
  - Transient ischaemic attack [None]
  - Panic attack [None]

NARRATIVE: CASE EVENT DATE: 200709
